FAERS Safety Report 22680596 (Version 4)
Quarter: 2024Q1

REPORT INFORMATION
  Report Type: Spontaneous
  Country: JP (occurrence: JP)
  Receive Date: 20230707
  Receipt Date: 20240112
  Transmission Date: 20240409
  Serious: Yes (Death, Other)
  Sender: FDA-Public Use
  Company Number: JP-GSKJP-JP2022JPN097994AA

PATIENT

DRUGS (38)
  1. DAPRODUSTAT [Suspect]
     Active Substance: DAPRODUSTAT
     Dosage: 2 MG, 1D, AFTER BREAKFAST
     Route: 048
     Dates: start: 20211213, end: 20220227
  2. TRIAMCINOLONE ACETONIDE [Concomitant]
     Active Substance: TRIAMCINOLONE ACETONIDE
     Indication: Stomatitis
     Dosage: UNK, TID
     Route: 002
     Dates: start: 20211213
  3. SULFAMETHOXAZOLE\TRIMETHOPRIM [Concomitant]
     Active Substance: SULFAMETHOXAZOLE\TRIMETHOPRIM
     Indication: Prophylaxis
     Dosage: 1 DF, 1D, AFTER BREAKFAST, TAKE ON MONDAY
     Dates: start: 20211015, end: 20211229
  4. BIO-THREE [Concomitant]
     Active Substance: HERBALS
     Indication: Gastrointestinal disorder prophylaxis
     Dosage: 1 DF, TID, AFTER BREAKFAST, LUNCH AND DINNER
     Dates: start: 20211217, end: 20220101
  5. TRIAMCINOLONE [Concomitant]
     Active Substance: TRIAMCINOLONE
     Indication: Stomatitis
     Dosage: UNK, BID
     Route: 002
     Dates: start: 20211223
  6. TACROLIMUS [Concomitant]
     Active Substance: TACROLIMUS
     Indication: Immunosuppressant drug therapy
     Dosage: 5MG, 1D, BEFORE BREAKFAST
     Dates: start: 20211015
  7. TACROLIMUS [Concomitant]
     Active Substance: TACROLIMUS
     Dosage: 1MG, 1D, BEFORE BREAKFAST
     Dates: start: 20211127
  8. TACROLIMUS [Concomitant]
     Active Substance: TACROLIMUS
     Dosage: 8MG, 1D, BEFORE BREAKFAST
     Dates: start: 20211201
  9. TACROLIMUS [Concomitant]
     Active Substance: TACROLIMUS
     Dosage: 7MG, 1D, BEFORE BREAKFAST
     Dates: start: 20211202
  10. TACROLIMUS [Concomitant]
     Active Substance: TACROLIMUS
     Dosage: 4MG, 1D, BEFORE BREAKFAST
     Dates: start: 20211209
  11. TACROLIMUS [Concomitant]
     Active Substance: TACROLIMUS
     Dosage: 1MG, 1D, BEFORE BREAKFAST
     Dates: start: 20211216
  12. TACROLIMUS [Concomitant]
     Active Substance: TACROLIMUS
     Dosage: 0.5MG, 1D, BEFORE BREAKFAST
     Dates: start: 20211221
  13. TACROLIMUS [Concomitant]
     Active Substance: TACROLIMUS
     Dosage: 1MG, 1D, BEFORE BREAKFAST
     Dates: start: 20211222
  14. TACROLIMUS [Concomitant]
     Active Substance: TACROLIMUS
     Dosage: 2.5MG, 1D, BEFORE BREAKFAST
     Dates: start: 20211223, end: 20220110
  15. CERTICAN [Concomitant]
     Active Substance: EVEROLIMUS
     Indication: Immunosuppressant drug therapy
     Dosage: 0.75 MG, BID, BEFORE BREAKFAST AND DINNER
     Dates: start: 20211201
  16. CERTICAN [Concomitant]
     Active Substance: EVEROLIMUS
     Dosage: 0.25MG, BID, BEFORE BREAKFAST AND DINNER
     Dates: start: 20211209, end: 20220110
  17. NEXIUM [Concomitant]
     Active Substance: ESOMEPRAZOLE MAGNESIUM
     Indication: Gastric ulcer
     Dosage: 20MG, 1D, AFTER BREAKFAST
     Dates: start: 20211015, end: 20220110
  18. MEDROL [Concomitant]
     Active Substance: METHYLPREDNISOLONE
     Indication: Immunosuppressant drug therapy
     Dosage: 4MG, 1D, AFTER BREAKFAST
     Dates: start: 20211015
  19. MEDROL [Concomitant]
     Active Substance: METHYLPREDNISOLONE
     Dosage: 8MG, 1D, AFTER BREAKFAST, STEROID TAPER
     Dates: start: 20211129
  20. MEDROL [Concomitant]
     Active Substance: METHYLPREDNISOLONE
     Dosage: 4MG, 1D, AFTER BREAKFAST
     Dates: start: 20211201, end: 20220110
  21. TAMSULOSIN HYDROCHLORIDE [Concomitant]
     Active Substance: TAMSULOSIN HYDROCHLORIDE
     Indication: Benign prostatic hyperplasia
     Dosage: 0.1MG, BID, AFTER BREAKFAST AND DINNER
     Dates: start: 20211015, end: 20220110
  22. FLUVASTATIN SODIUM [Concomitant]
     Active Substance: FLUVASTATIN SODIUM
     Indication: Hyperlipidaemia
     Dosage: 20MG, 1D, AFTER DINNER
     Dates: start: 20211015, end: 20220110
  23. FEBUXOSTAT [Concomitant]
     Active Substance: FEBUXOSTAT
     Indication: Hyperuricaemia
     Dosage: 10MG, 1D, AFTER BREAKFAST
     Dates: start: 20211015, end: 20220110
  24. FERROUS SULFATE [Concomitant]
     Active Substance: FERROUS SULFATE
     Indication: Iron deficiency
     Dosage: 105 MG, 1D, AFTER BREAKFAST
     Dates: start: 20211015, end: 20220110
  25. ZINC [Concomitant]
     Active Substance: PYRITHIONE ZINC\ZINC\ZINC CHLORIDE
     Indication: Zinc deficiency
     Dosage: 50 MG, BID, AFTER BREAKFAST AND DINNER
     Dates: start: 20211201, end: 20220110
  26. FLUCONAZOLE [Concomitant]
     Active Substance: FLUCONAZOLE
     Indication: Fungal infection
     Dosage: 400MG, 1D, AFTER BREAKFAST
     Dates: start: 20211201
  27. FLUCONAZOLE [Concomitant]
     Active Substance: FLUCONAZOLE
     Dosage: 200MG, 1D, AFTER BREAKFAST
     Dates: start: 20211216, end: 20220110
  28. SODIUM GUALENATE MONOHYDRATE [Concomitant]
     Active Substance: SODIUM GUALENATE MONOHYDRATE
     Indication: Stomatitis
     Dosage: UNK, TID
     Route: 049
     Dates: start: 20211213
  29. PETROLATUM [Concomitant]
     Active Substance: PETROLATUM
     Indication: Dry skin
     Dosage: UNK
     Dates: start: 20211113
  30. SODIUM PICOSULFATE [Concomitant]
     Active Substance: SODIUM PICOSULFATE
     Indication: Constipation
     Dosage: UNK, PRN(WHEN CONSTIPATED)
     Dates: start: 20211112
  31. RISPERDAL [Concomitant]
     Active Substance: RISPERIDONE
     Indication: Anxiety
     Dosage: 0.5 ML, PRN(WHEN UNREST)
     Dates: start: 20211112
  32. CELLCEPT [Concomitant]
     Active Substance: MYCOPHENOLATE MOFETIL
     Indication: Immunosuppression
     Dosage: 750 MG, BID, AFTER BREAKFAST AND DINNER
     Dates: start: 20211015, end: 20211211
  33. ASENAPINE MALEATE [Concomitant]
     Active Substance: ASENAPINE MALEATE
     Indication: Anxiety
     Dosage: 5 MG, PRN(WHEN UNREST)
     Dates: start: 20211112
  34. TIMOLOL MALEATE [Concomitant]
     Active Substance: TIMOLOL MALEATE
     Indication: Glaucoma
     Dosage: UNK, 1D, MORNING, LEFT EYE
     Route: 047
     Dates: start: 20211129
  35. LATANOPROST [Concomitant]
     Active Substance: LATANOPROST
     Indication: Glaucoma
     Dosage: UNK, 1D, BEFORE BATHING, LEFT EYE
     Route: 047
     Dates: start: 20211129
  36. BROMFENAC SODIUM [Concomitant]
     Active Substance: BROMFENAC SODIUM
     Indication: Rhinitis
     Dosage: UNK, BID, BOTH EYES
     Dates: start: 20211129
  37. BROMFENAC SODIUM [Concomitant]
     Active Substance: BROMFENAC SODIUM
     Indication: Conjunctivitis
     Dosage: UNK, BID, BOTH EYES
     Dates: start: 20211129
  38. BENZETHONIUM CHLORIDE [Concomitant]
     Active Substance: BENZETHONIUM CHLORIDE
     Indication: Stomatitis
     Dosage: UNK
     Route: 049
     Dates: start: 20211202, end: 20211213

REACTIONS (8)
  - Deep vein thrombosis [Unknown]
  - Systemic infection [Fatal]
  - General physical health deterioration [Fatal]
  - Renal failure [Fatal]
  - Hyperkalaemia [Unknown]
  - Urinary tract infection [Unknown]
  - Back pain [Unknown]
  - Staphylococcal infection [Unknown]

NARRATIVE: CASE EVENT DATE: 20220225
